FAERS Safety Report 9412554 (Version 2)
Quarter: 2013Q3

REPORT INFORMATION
  Report Type: Spontaneous
  Country: PL (occurrence: PL)
  Receive Date: 20130722
  Receipt Date: 20130723
  Transmission Date: 20140515
  Serious: Yes (Life-Threatening)
  Sender: FDA-Public Use
  Company Number: PL-TEVA-419976ISR

PATIENT
  Age: 57 Year
  Sex: Female
  Weight: 48 kg

DRUGS (3)
  1. CISPLATIN [Suspect]
     Indication: RESPIRATORY TRACT NEOPLASM
     Dosage: 120.01 MILLIGRAM DAILY;
     Route: 042
     Dates: start: 20120720, end: 20120720
  2. NAVIBINA [Concomitant]
     Indication: RESPIRATORY TRACT NEOPLASM
     Dosage: 45.01 MILLIGRAM DAILY;
     Route: 042
     Dates: start: 20120720, end: 20120720
  3. NAVIBINA [Concomitant]
     Dosage: 45.01 MILLIGRAM DAILY;
     Route: 042
     Dates: start: 20120727, end: 20120727

REACTIONS (1)
  - Agranulocytosis [Unknown]
